FAERS Safety Report 8310235-3 (Version None)
Quarter: 2012Q2

REPORT INFORMATION
  Report Type: 
  Country: None (occurrence: None)
  Receive Date: 20120425
  Receipt Date: 20120420
  Transmission Date: 20120825
  Serious: Yes (Other)
  Sender: FDA-Public Use
  Company Number: US-PFIZER INC-2012062662

PATIENT
  Sex: Female
  Weight: 74.8 kg

DRUGS (1)
  1. LYRICA [Suspect]
     Indication: FIBROMYALGIA
     Dosage: 75 MG, 4X/DAY
     Route: 048
     Dates: start: 20110101, end: 20111201

REACTIONS (4)
  - FIBROMYALGIA [None]
  - WEIGHT INCREASED [None]
  - DRUG INEFFECTIVE [None]
  - HUNGER [None]
